FAERS Safety Report 4921256-2 (Version None)
Quarter: 2006Q1

REPORT INFORMATION
  Report Type: 
  Country: None (occurrence: None)
  Receive Date: 20060224
  Receipt Date: 20051212
  Transmission Date: 20060701
  Serious: Yes (Death, Hospitalization)
  Sender: FDA-Public Use
  Company Number: AU-BOEHRINGER INGELHEIM PHARMACEUTICALS, INC.-2005-BP-21272AU

PATIENT
  Age: 72 Year
  Sex: Male

DRUGS (2)
  1. ASASANTIN SR (CAPSULE, LONG ACTING) [Suspect]
     Indication: TRANSIENT ISCHAEMIC ATTACK
     Route: 048
  2. CLOPIDOGREL [Suspect]
     Indication: ANGINA PECTORIS
     Route: 048
     Dates: start: 20040101

REACTIONS (2)
  - ANGINA PECTORIS [None]
  - HAEMATEMESIS [None]
